FAERS Safety Report 10160686 (Version 2)
Quarter: 2014Q2

REPORT INFORMATION
  Report Type: Spontaneous
  Country: US (occurrence: US)
  Receive Date: 20140508
  Receipt Date: 20140508
  Transmission Date: 20141212
  Serious: Yes (Other)
  Sender: FDA-Public Use
  Company Number: CHPA2011US11159

PATIENT
  Age: 84 Year
  Sex: Male

DRUGS (12)
  1. VOLTAREN GEL [Suspect]
     Indication: ARTHRALGIA
     Dosage: UNK
     Route: 061
  2. VOLTAREN GEL [Suspect]
     Indication: PAIN IN EXTREMITY
  3. VOLTAREN GEL [Suspect]
     Indication: OFF LABEL USE
  4. XANAX [Concomitant]
     Indication: SLEEP DISORDER
     Dosage: .25 MG, HALF HOUR BEFORE BEDTIME
  5. OMEPRAZOLE [Concomitant]
     Indication: GASTROINTESTINAL DISORDER
     Dosage: UNK, BID
  6. CALCIUM CITRATE [Concomitant]
  7. BABY ASPIRIN [Concomitant]
     Dosage: UNK, EVERY OTHER DAY
  8. LOSARTAN [Concomitant]
     Indication: BLOOD PRESSURE
     Dosage: 50 MG, UNK
  9. DRUG THERAPY NOS [Concomitant]
     Indication: BLOOD CHOLESTEROL
     Dosage: 54 MG, UNK
  10. VITAMIN D3 [Concomitant]
  11. PRAVASTATIN [Concomitant]
     Dosage: 10 MG, UNK
  12. ZYRTEC [Concomitant]

REACTIONS (5)
  - Chondromalacia [Unknown]
  - Arthritis [Unknown]
  - Neuralgia [Not Recovered/Not Resolved]
  - Rash [Recovered/Resolved]
  - Drug administered at inappropriate site [Unknown]
